FAERS Safety Report 5612861-9 (Version None)
Quarter: 2008Q1

REPORT INFORMATION
  Report Type: 
  Country: None (occurrence: None)
  Receive Date: 20080204
  Receipt Date: 20080123
  Transmission Date: 20080703
  Serious: Yes (Hospitalization, Other)
  Sender: FDA-Public Use
  Company Number: US-PFIZER INC-2008006984

PATIENT
  Sex: Female
  Weight: 79.4 kg

DRUGS (4)
  1. XANAX [Suspect]
     Indication: ANXIETY
  2. ALPRAZOLAM [Suspect]
     Indication: ANXIETY
  3. NEURONTIN [Suspect]
     Indication: NEURALGIA
  4. GABAPENTIN [Suspect]
     Dosage: DAILY DOSE:1800MG

REACTIONS (3)
  - NEURALGIA [None]
  - RENAL CELL CARCINOMA [None]
  - SURGERY [None]
